FAERS Safety Report 14856025 (Version 8)
Quarter: 2019Q1

REPORT INFORMATION
  Report Type: Spontaneous
  Country: US (occurrence: US)
  Receive Date: 20180507
  Receipt Date: 20190320
  Transmission Date: 20190417
  Serious: Yes (Hospitalization)
  Sender: FDA-Public Use
  Company Number: US-ACTELION-A-US2018-171081

PATIENT
  Age: 16 Year
  Sex: Female
  Weight: 46.26 kg

DRUGS (8)
  1. CALCITRIOL. [Concomitant]
     Active Substance: CALCITRIOL
     Dosage: 0.25 MCG, QD
     Dates: start: 20120605
  2. SILDENAFIL. [Concomitant]
     Active Substance: SILDENAFIL
     Dosage: 20 MG, TID
     Dates: start: 20120605
  3. POTASSIUM CHLORIDE. [Concomitant]
     Active Substance: POTASSIUM CHLORIDE
     Dosage: 20 MEQ, BID
     Dates: start: 20130905
  4. TRACLEER [Suspect]
     Active Substance: BOSENTAN
     Indication: PULMONARY ARTERIAL HYPERTENSION
     Dosage: 62.5 MG, BID
     Route: 048
     Dates: start: 20090910
  5. DIGOXIN. [Concomitant]
     Active Substance: DIGOXIN
     Dosage: 250 MCG, QD
     Dates: start: 20120605
  6. SPIRONOLACTONE. [Concomitant]
     Active Substance: SPIRONOLACTONE
     Dosage: 25 MG, BID
     Dates: start: 20160223
  7. CHLORTHIAZIDE [Concomitant]
     Active Substance: CHLOROTHIAZIDE
     Dosage: 250 MG, BID
     Dates: start: 20130605
  8. MAGNESIUM OXIDE. [Concomitant]
     Active Substance: MAGNESIUM OXIDE
     Dosage: 400 MG, BID
     Dates: start: 20120604

REACTIONS (10)
  - Abdominal pain lower [Unknown]
  - Dehydration [Unknown]
  - Oxygen saturation decreased [Unknown]
  - Influenza [Unknown]
  - Bacterial infection [Unknown]
  - Viral infection [Unknown]
  - Pneumonia [Unknown]
  - Pyrexia [Unknown]
  - Xanthopsia [Unknown]
  - Respiratory distress [Unknown]

NARRATIVE: CASE EVENT DATE: 201803
